FAERS Safety Report 6827316-3 (Version None)
Quarter: 2010Q3

REPORT INFORMATION
  Report Type: 
  Country: None (occurrence: None)
  Receive Date: 20100709
  Receipt Date: 20100707
  Transmission Date: 20110219
  Serious: Yes (Death)
  Sender: FDA-Public Use
  Company Number: US-ABBOTT-10P-163-0655562-00

PATIENT
  Sex: Female

DRUGS (8)
  1. HUMIRA [Suspect]
     Indication: CROHN'S DISEASE
     Dates: start: 20091223, end: 20100603
  2. LEXAPRO [Concomitant]
     Indication: ANXIETY
  3. PREDNISONE [Concomitant]
     Indication: CROHN'S DISEASE
  4. IRON [Concomitant]
     Indication: ANAEMIA
  5. TEGRAF [Concomitant]
     Indication: PRODUCT USED FOR UNKNOWN INDICATION
  6. GLYBURIDE [Concomitant]
     Indication: DIABETES MELLITUS
  7. AZATHIOPRINE [Concomitant]
     Indication: CROHN'S DISEASE
  8. DIAZEPAM [Concomitant]
     Indication: ANXIETY

REACTIONS (2)
  - MYOCARDIAL INFARCTION [None]
  - STRESS [None]
